FAERS Safety Report 5818804-7 (Version None)
Quarter: 2008Q3

REPORT INFORMATION
  Report Type: 
  Country: None (occurrence: None)
  Receive Date: 20080721
  Receipt Date: 20080721
  Transmission Date: 20090109
  Serious: Yes (Life-Threatening, Hospitalization)
  Sender: FDA-Public Use
  Company Number: None

PATIENT
  Sex: Male
  Weight: 86.1834 kg

DRUGS (1)
  1. METOPROLOL SUCCINATE [Suspect]
     Indication: BLOOD PRESSURE
     Dates: start: 20080717, end: 20080717

REACTIONS (4)
  - DYSSTASIA [None]
  - FALL [None]
  - PHARMACEUTICAL PRODUCT COMPLAINT [None]
  - VISION BLURRED [None]
